FAERS Safety Report 8572584-3 (Version None)
Quarter: 2012Q3

REPORT INFORMATION
  Report Type: 
  Country: None (occurrence: None)
  Receive Date: 20120806
  Receipt Date: 20120112
  Transmission Date: 20120928
  Serious: Yes (Hospitalization, Other)
  Sender: FDA-Public Use
  Company Number: US-ROCHE-1095422

PATIENT
  Sex: Female

DRUGS (6)
  1. XOLAIR [Suspect]
     Indication: ASTHMA
     Route: 065
  2. ALBUTEROL [Concomitant]
  3. SINGULAIR [Concomitant]
  4. NEXIUM [Concomitant]
  5. FLOVENT [Concomitant]
  6. ALLEGRA [Concomitant]

REACTIONS (2)
  - SYNCOPE [None]
  - FATIGUE [None]
